FAERS Safety Report 8122584-2 (Version None)
Quarter: 2012Q1

REPORT INFORMATION
  Report Type: 
  Country: None (occurrence: None)
  Receive Date: 20120208
  Receipt Date: 20120125
  Transmission Date: 20120608
  Serious: Yes (Death, Hospitalization, Other)
  Sender: FDA-Public Use
  Company Number: CA-ROCHE-1035304

PATIENT

DRUGS (4)
  1. MABTHERA [Suspect]
     Indication: LYMPHOCYTIC LYMPHOMA
  2. FLUDARABINE PHOSPHATE [Suspect]
     Indication: LYMPHOCYTIC LYMPHOMA
  3. MABTHERA [Suspect]
     Indication: CHRONIC LYMPHOCYTIC LEUKAEMIA
     Dosage: ON DAY 1
     Route: 042
  4. FLUDARABINE PHOSPHATE [Suspect]
     Indication: CHRONIC LYMPHOCYTIC LEUKAEMIA
     Dosage: DAYS 1-5
     Route: 048

REACTIONS (11)
  - ANAEMIA HAEMOLYTIC AUTOIMMUNE [None]
  - TOXICITY TO VARIOUS AGENTS [None]
  - HERPES ZOSTER [None]
  - PANCYTOPENIA [None]
  - INTERSTITIAL LUNG DISEASE [None]
  - SEPSIS [None]
  - FEBRILE NEUTROPENIA [None]
  - INFECTION [None]
  - PLEURAL EFFUSION [None]
  - LUNG DISORDER [None]
  - IDIOPATHIC THROMBOCYTOPENIC PURPURA [None]
